FAERS Safety Report 5315454-6 (Version None)
Quarter: 2007Q2

REPORT INFORMATION
  Report Type: 
  Country: None (occurrence: None)
  Receive Date: 20070503
  Receipt Date: 20070425
  Transmission Date: 20071010
  Serious: Yes (Hospitalization)
  Sender: FDA-Public Use
  Company Number: FR-JNJFOC-20070304376

PATIENT
  Age: 52 Year
  Sex: Male

DRUGS (11)
  1. RISPERDAL CONSTA [Suspect]
     Route: 030
  2. RISPERDAL CONSTA [Suspect]
     Indication: SCHIZOPHRENIA, PARANOID TYPE
     Route: 030
  3. NOZINAN [Suspect]
     Route: 065
  4. NOZINAN [Suspect]
     Indication: SCHIZOPHRENIA, PARANOID TYPE
     Route: 065
  5. TERALITHE [Concomitant]
     Route: 065
  6. LOXAPAC [Concomitant]
     Indication: PSYCHOTIC DISORDER
     Route: 065
  7. DEPAMIDE [Concomitant]
  8. MEPRONIZINE [Concomitant]
  9. NOCTAMIDE [Concomitant]
  10. BROMAZEPAM [Concomitant]
  11. EQUANIL [Concomitant]

REACTIONS (1)
  - BLOOD CREATINE PHOSPHOKINASE INCREASED [None]
